FAERS Safety Report 12700325 (Version 2)
Quarter: 2016Q4

REPORT INFORMATION
  Report Type: Spontaneous
  Country: US (occurrence: US)
  Receive Date: 20160830
  Receipt Date: 20161128
  Transmission Date: 20170207
  Serious: Yes (Other)
  Sender: FDA-Public Use
  Company Number: US-SA-2015SA181019

PATIENT
  Age: 21 Year
  Sex: Female

DRUGS (1)
  1. FABRAZYME [Suspect]
     Active Substance: AGALSIDASE BETA
     Indication: FABRY^S DISEASE
     Route: 041
     Dates: start: 20150916

REACTIONS (5)
  - Ocular vascular disorder [Not Recovered/Not Resolved]
  - Burning sensation [Unknown]
  - Nasopharyngitis [Unknown]
  - Pyrexia [Unknown]
  - Arthropathy [Unknown]

NARRATIVE: CASE EVENT DATE: 20151102
